FAERS Safety Report 7748925-3 (Version None)
Quarter: 2011Q3

REPORT INFORMATION
  Report Type: 
  Country: None (occurrence: None)
  Receive Date: 20110913
  Receipt Date: 20110913
  Transmission Date: 20111222
  Serious: No
  Sender: FDA-Public Use
  Company Number: None

PATIENT
  Age: 56 Year
  Sex: Male
  Weight: 71.3 kg

DRUGS (1)
  1. PALIPERIDONE [Suspect]
     Indication: SUICIDAL IDEATION
     Dosage: 156 MG ONCE IM
     Route: 030
     Dates: start: 20110615, end: 20110615

REACTIONS (3)
  - DYSTONIA [None]
  - MUSCULOSKELETAL DISORDER [None]
  - ASTHENIA [None]
